FAERS Safety Report 6976826-7 (Version None)
Quarter: 2010Q3

REPORT INFORMATION
  Report Type: 
  Country: None (occurrence: None)
  Receive Date: 20100910
  Receipt Date: 20100908
  Transmission Date: 20110219
  Serious: Yes (Other)
  Sender: FDA-Public Use
  Company Number: A0865593A

PATIENT
  Age: 52 Year
  Sex: Female

DRUGS (4)
  1. VENTOLIN HFA [Suspect]
     Route: 055
  2. BLOOD PRESSURE MEDICATION [Concomitant]
  3. LEXAPRO [Concomitant]
  4. ADVAIR DISKUS 100/50 [Concomitant]

REACTIONS (18)
  - APPARENT DEATH [None]
  - COUGH [None]
  - DYSPHONIA [None]
  - DYSPNOEA [None]
  - EYE HAEMORRHAGE [None]
  - FOREIGN BODY [None]
  - FOREIGN BODY ASPIRATION [None]
  - LARYNGITIS [None]
  - NASAL OEDEMA [None]
  - PHARYNGEAL INFLAMMATION [None]
  - PHARYNGITIS [None]
  - PRODUCT QUALITY ISSUE [None]
  - RETCHING [None]
  - SPEECH DISORDER [None]
  - THROAT IRRITATION [None]
  - UPPER RESPIRATORY TRACT INFLAMMATION [None]
  - VOCAL CORD INFLAMMATION [None]
  - VOMITING [None]
